FAERS Safety Report 19130386 (Version 1)
Quarter: 2021Q2

REPORT INFORMATION
  Report Type: Spontaneous
  Country: CA (occurrence: CA)
  Receive Date: 20210413
  Receipt Date: 20210413
  Transmission Date: 20210717
  Serious: Yes (Other)
  Sender: FDA-Public Use
  Company Number: CA-PURDUE-USA-2021-0243960

PATIENT
  Age: 68 Year
  Sex: Male

DRUGS (3)
  1. GABAPENTIN. [Suspect]
     Active Substance: GABAPENTIN
     Indication: WOUND COMPLICATION
     Dosage: UNK (2 EVERY 1 DAYS)
     Route: 048
  2. INSULIN [Concomitant]
     Active Substance: INSULIN NOS
  3. OXYCONTIN [Suspect]
     Active Substance: OXYCODONE HYDROCHLORIDE
     Indication: WOUND COMPLICATION
     Dosage: UNK (2 EVERY 1 DAYS)
     Route: 048

REACTIONS (3)
  - Loss of consciousness [Unknown]
  - Haemorrhage [Unknown]
  - Head injury [Unknown]
